FAERS Safety Report 18709015 (Version 1)
Quarter: 2021Q1

REPORT INFORMATION
  Report Type: Spontaneous
  Country: FR (occurrence: FR)
  Receive Date: 20210107
  Receipt Date: 20210107
  Transmission Date: 20210419
  Serious: Yes (Life-Threatening)
  Sender: FDA-Public Use
  Company Number: FR-JNJFOC-20210106340

PATIENT
  Age: 54 Year
  Sex: Female
  Weight: 75 kg

DRUGS (6)
  1. PREGABALINE [Suspect]
     Active Substance: PREGABALIN
     Indication: ANXIETY
     Route: 048
     Dates: end: 20201202
  2. HALDOL [Suspect]
     Active Substance: HALOPERIDOL
     Indication: PSYCHOTIC DISORDER
     Route: 048
     Dates: end: 20201202
  3. LOXAPAC [LOXAPINE] [Suspect]
     Active Substance: LOXAPINE
     Indication: PSYCHOTIC DISORDER
     Route: 048
     Dates: end: 20201202
  4. TERALITHE [Suspect]
     Active Substance: LITHIUM CARBONATE
     Indication: PSYCHOTIC DISORDER
     Route: 048
     Dates: end: 20201202
  5. VALIUM [Suspect]
     Active Substance: DIAZEPAM
     Indication: ANXIETY
     Route: 048
     Dates: end: 20201202
  6. THERALENE [Suspect]
     Active Substance: TRIMEPRAZINE
     Indication: PSYCHOTIC DISORDER
     Route: 048
     Dates: end: 20201202

REACTIONS (3)
  - Haemodynamic instability [Recovered/Resolved]
  - Depressed level of consciousness [Recovered/Resolved]
  - Hypothermia [Recovered/Resolved]

NARRATIVE: CASE EVENT DATE: 20201202
